FAERS Safety Report 20491738 (Version 2)
Quarter: 2022Q1

REPORT INFORMATION
  Report Type: Spontaneous
  Country: CL (occurrence: None)
  Receive Date: 20220218
  Receipt Date: 20220228
  Transmission Date: 20220424
  Serious: Yes (Other)
  Sender: FDA-Public Use
  Company Number: CL-ROCHE-3028696

PATIENT
  Age: 39 Year
  Weight: 75 kg

DRUGS (1)
  1. HEMLIBRA [Suspect]
     Active Substance: EMICIZUMAB-KXWH
     Indication: Factor VIII deficiency
     Route: 065
     Dates: start: 201906

REACTIONS (7)
  - Haemorrhage [Recovered/Resolved]
  - Muscle contracture [Recovering/Resolving]
  - Myalgia [Recovering/Resolving]
  - Abdominal discomfort [Recovering/Resolving]
  - Discomfort [Unknown]
  - Pain [Unknown]
  - Hepatic haemorrhage [Unknown]

NARRATIVE: CASE EVENT DATE: 20220131
